FAERS Safety Report 7275590-4 (Version None)
Quarter: 2011Q1

REPORT INFORMATION
  Report Type: 
  Country: None (occurrence: None)
  Receive Date: 20110204
  Receipt Date: 20110202
  Transmission Date: 20110831
  Serious: Yes (Death)
  Sender: FDA-Public Use
  Company Number: FR-ABBOTT-11P-056-0702069-00

PATIENT
  Age: 70 Year
  Sex: Female

DRUGS (3)
  1. ANTI-INFLAMMATORY AGENT (NOS) [Concomitant]
     Indication: PRODUCT USED FOR UNKNOWN INDICATION
  2. ISOPTIN [Suspect]
     Indication: HYPERTENSION
  3. TARKA [Suspect]
     Indication: HYPERTENSION

REACTIONS (3)
  - GENERAL PHYSICAL CONDITION ABNORMAL [None]
  - DEATH [None]
  - VERTIGO [None]
